FAERS Safety Report 9043753 (Version 1)
Quarter: 2013Q1

REPORT INFORMATION
  Report Type: Report from Study
  Country: US (occurrence: US)
  Receive Date: 20130129
  Receipt Date: 20130129
  Transmission Date: 20140127
  Serious: No
  Sender: FDA-Public Use
  Company Number: US-ABBOTT-12P-163-0913316-00

PATIENT
  Sex: Female
  Weight: 62.2 kg

DRUGS (2)
  1. HUMIRA 40 MG/0.8 ML PEN [Suspect]
     Indication: RHEUMATOID ARTHRITIS
     Dates: start: 2006, end: 2007
  2. HUMIRA 40 MG/0.8 ML PEN [Suspect]
     Dates: start: 2008

REACTIONS (8)
  - Diarrhoea [Recovered/Resolved]
  - Cough [Recovered/Resolved]
  - Chest pain [Recovered/Resolved]
  - Abdominal pain upper [Recovered/Resolved]
  - Vomiting [Recovered/Resolved]
  - Rheumatoid factor [Recovered/Resolved]
  - Pyrexia [Recovered/Resolved]
  - Nausea [Recovered/Resolved]
